FAERS Safety Report 19482658 (Version 1)
Quarter: 2021Q3

REPORT INFORMATION
  Report Type: Spontaneous
  Country: US (occurrence: US)
  Receive Date: 20210701
  Receipt Date: 20210701
  Transmission Date: 20211014
  Serious: Yes (Other)
  Sender: FDA-Public Use
  Company Number: US-GLAXOSMITHKLINE-US2021139744

PATIENT
  Age: 72 Year
  Sex: Female

DRUGS (1)
  1. NUCALA [Suspect]
     Active Substance: MEPOLIZUMAB
     Indication: ASTHMA
     Dosage: UNK
     Dates: start: 20210617

REACTIONS (7)
  - Cough [Unknown]
  - Croup infectious [Not Recovered/Not Resolved]
  - Feeling jittery [Unknown]
  - Hyperhidrosis [Unknown]
  - Adverse drug reaction [Recovering/Resolving]
  - Drug ineffective [Unknown]
  - Chills [Unknown]

NARRATIVE: CASE EVENT DATE: 20210618
